FAERS Safety Report 23200549 (Version 1)
Quarter: 2023Q4

REPORT INFORMATION
  Report Type: Spontaneous
  Country: US (occurrence: US)
  Receive Date: 20231118
  Receipt Date: 20231118
  Transmission Date: 20240109
  Serious: Yes (Other)
  Sender: FDA-Public Use
  Company Number: US-ENDO-CASE-0042566

PATIENT
  Sex: Female

DRUGS (15)
  1. PERCOCET [Suspect]
     Active Substance: ACETAMINOPHEN\OXYCODONE HYDROCHLORIDE
  2. BUPRENORPHINE HYDROCHLORIDE [Suspect]
     Active Substance: BUPRENORPHINE HYDROCHLORIDE
  3. ENDODAN [Suspect]
     Active Substance: ASPIRIN\OXYCODONE HYDROCHLORIDE
  4. ACETAMINOPHEN\OXYCODONE HYDROCHLORIDE [Suspect]
     Active Substance: ACETAMINOPHEN\OXYCODONE HYDROCHLORIDE
  5. TRAMADOL HYDROCHLORIDE [Suspect]
     Active Substance: TRAMADOL HYDROCHLORIDE
  6. ACETAMINOPHEN\HYDROCODONE BITARTRATE [Suspect]
     Active Substance: ACETAMINOPHEN\HYDROCODONE BITARTRATE
  7. ENDOCET [Suspect]
     Active Substance: ACETAMINOPHEN\OXYCODONE HYDROCHLORIDE
  8. IBUDONE [Suspect]
     Active Substance: HYDROCODONE BITARTRATE\IBUPROFEN
  9. ACETAMINOPHEN AND CODEINE [Suspect]
     Active Substance: ACETAMINOPHEN\CODEINE PHOSPHATE
  10. HYDROCODONE BITARTRATE\IBUPROFEN [Suspect]
     Active Substance: HYDROCODONE BITARTRATE\IBUPROFEN
  11. OXYMORPHONE HYDROCHLORIDE [Suspect]
     Active Substance: OXYMORPHONE HYDROCHLORIDE
  12. MEPERIDINE HYDROCHLORIDE [Suspect]
     Active Substance: MEPERIDINE HYDROCHLORIDE
  13. BUTALBITAL, ACETAMINOPHEN AND CAFFEINE WITH CODEINE PHOSPHATE [Suspect]
     Active Substance: ACETAMINOPHEN\BUTALBITAL\CAFFEINE\CODEINE PHOSPHATE
  14. DEPODUR [Suspect]
     Active Substance: MORPHINE SULFATE
  15. MORPHINE SULFATE [Suspect]
     Active Substance: MORPHINE SULFATE

REACTIONS (2)
  - Overdose [Unknown]
  - Dependence [Unknown]
